FAERS Safety Report 8998896 (Version 2)
Quarter: 2013Q1

REPORT INFORMATION
  Report Type: Spontaneous
  Country: JP (occurrence: JP)
  Receive Date: 20130103
  Receipt Date: 20130111
  Transmission Date: 20140127
  Serious: Yes (Death, Hospitalization)
  Sender: FDA-Public Use
  Company Number: JP-SANOFI-AVENTIS-2012SA071485

PATIENT
  Age: 93 Year
  Sex: Male
  Weight: 49 kg

DRUGS (8)
  1. AMARYL [Suspect]
     Indication: TYPE 2 DIABETES MELLITUS
     Route: 048
     Dates: end: 20120914
  2. AMARYL [Suspect]
     Indication: TYPE 2 DIABETES MELLITUS
     Route: 065
  3. HOCHUUEKKITOU [Concomitant]
     Route: 048
     Dates: end: 20120914
  4. SIMVASTATIN [Concomitant]
     Indication: DYSLIPIDAEMIA
     Route: 048
     Dates: end: 20120914
  5. CLOTIAZEPAM [Concomitant]
     Indication: DEPRESSION
     Route: 048
     Dates: end: 20120914
  6. FLUVOXAMINE MALEATE [Concomitant]
     Indication: DEPRESSION
     Route: 048
     Dates: end: 20120914
  7. HERBAL PREPARATION [Concomitant]
     Indication: SUBDURAL HAEMATOMA
     Route: 048
     Dates: start: 20120830, end: 20120914
  8. KETAS [Concomitant]
     Indication: SUBDURAL HAEMATOMA
     Route: 048
     Dates: start: 20120830, end: 20120914

REACTIONS (5)
  - Pneumonia aspiration [Fatal]
  - Hypoglycaemia [Recovered/Resolved with Sequelae]
  - Altered state of consciousness [Unknown]
  - Dyslalia [Unknown]
  - Dysphagia [Unknown]
